FAERS Safety Report 5221595-4 (Version None)
Quarter: 2007Q1

REPORT INFORMATION
  Report Type: 
  Country: None (occurrence: None)
  Receive Date: 20070129
  Receipt Date: 20070123
  Transmission Date: 20070707
  Serious: Yes (Other)
  Sender: FDA-Public Use
  Company Number: CA-ELI_LILLY_AND_COMPANY-CA200701004683

PATIENT
  Sex: Male

DRUGS (2)
  1. ZYPREXA [Suspect]
     Dosage: 5 MG, DAILY (1/D)
     Route: 048
     Dates: start: 19970101
  2. APO-FLURAZEPAM [Concomitant]
     Dosage: UNK, AS NEEDED

REACTIONS (3)
  - CROHN'S DISEASE [None]
  - MUSCULOSKELETAL STIFFNESS [None]
  - MYALGIA [None]
